FAERS Safety Report 24770032 (Version 1)
Quarter: 2024Q4

REPORT INFORMATION
  Report Type: Spontaneous
  Country: FR (occurrence: FR)
  Receive Date: 20241224
  Receipt Date: 20241224
  Transmission Date: 20250114
  Serious: Yes (Hospitalization)
  Sender: AZURITY PHARMACEUTICALS
  Company Number: FR-AZURITY PHARMACEUTICALS, INC.-AZR202304-000006

PATIENT
  Age: 35 Year
  Sex: Female
  Weight: 75.1 kg

DRUGS (4)
  1. TRIPTORELIN [Suspect]
     Active Substance: TRIPTORELIN
     Indication: Breast cancer
     Dosage: 1 INJ/MOIS
     Route: 042
     Dates: start: 202107
  2. EPIRUBICIN [Suspect]
     Active Substance: EPIRUBICIN
     Indication: Breast cancer
     Dosage: 100 MILLIGRAM/SQ. METER, IN 3 WEEK
     Route: 042
     Dates: start: 20210430, end: 202105
  3. PACLITAXEL [Suspect]
     Active Substance: PACLITAXEL
     Indication: Breast cancer
     Dosage: 800 MILLIGRAM/SQ. METER
     Route: 042
     Dates: start: 20210430, end: 202105
  4. CYCLOPHOSPHAMIDE [Suspect]
     Active Substance: CYCLOPHOSPHAMIDE
     Indication: Breast cancer
     Dosage: 500 MILLIGRAM/SQ. METER, IN 3 WEEK
     Route: 042
     Dates: start: 20210430

REACTIONS (3)
  - Memory impairment [Not Recovered/Not Resolved]
  - Cognitive disorder [Not Recovered/Not Resolved]
  - Disturbance in attention [Not Recovered/Not Resolved]

NARRATIVE: CASE EVENT DATE: 20210601
